FAERS Safety Report 26197146 (Version 1)
Quarter: 2025Q4

REPORT INFORMATION
  Report Type: Report from Study
  Country: IN (occurrence: IN)
  Receive Date: 20251224
  Receipt Date: 20251224
  Transmission Date: 20260117
  Serious: Yes (Other)
  Sender: CIPLA
  Company Number: IN-CIPLA LTD.-2025IN15229

PATIENT

DRUGS (3)
  1. LEVETIRACETAM [Suspect]
     Active Substance: LEVETIRACETAM
     Indication: Seizure
     Dosage: 500 MILLIGRAM, BID (MORNING AND EVENING)
     Route: 048
  2. LEVETIRACETAM [Suspect]
     Active Substance: LEVETIRACETAM
     Dosage: 750 MILLIGRAM, BID (MORNING AND EVENING)
     Route: 048
  3. LEVETIRACETAM [Suspect]
     Active Substance: LEVETIRACETAM
     Dosage: 1 GRAM, BID (1-0-1/MORNING AND EVENING)
     Route: 048
     Dates: start: 202507

REACTIONS (9)
  - Seizure [Unknown]
  - Hypoaesthesia [Not Recovered/Not Resolved]
  - Aggression [Unknown]
  - Fall [Unknown]
  - Quality of life decreased [Unknown]
  - Memory impairment [Unknown]
  - Hypersomnia [Unknown]
  - Alopecia [Unknown]
  - Weight decreased [Unknown]

NARRATIVE: CASE EVENT DATE: 20250101
